FAERS Safety Report 8172530-0 (Version None)
Quarter: 2012Q1

REPORT INFORMATION
  Report Type: 
  Country: None (occurrence: None)
  Receive Date: 20120223
  Receipt Date: 20120214
  Transmission Date: 20120608
  Serious: Yes (Congenital Anomaly, Other)
  Sender: FDA-Public Use
  Company Number: AUR-APL-2011-05600

PATIENT
  Sex: Male
  Weight: 0.425 kg

DRUGS (5)
  1. ZIDOVUDINE [Suspect]
     Indication: ANTIVIRAL TREATMENT
     Dosage: TRANSPLACENTAL
     Route: 064
     Dates: start: 20110915, end: 20110915
  2. PREZISTA [Suspect]
     Indication: ANTIVIRAL TREATMENT
     Dosage: (800 MG, 1 D), TRANSPLACENTAL
     Route: 064
     Dates: start: 20110428
  3. COMBIVIR [Suspect]
     Indication: ANTIVIRAL TREATMENT
     Dosage: TRANSPLACENTAL
     Route: 064
     Dates: start: 20110421, end: 20110915
  4. NORVIR [Suspect]
     Indication: ANTIVIRAL TREATMENT
     Dosage: (200 MG, 1 D), TRANSPLACENTAL
     Route: 064
     Dates: start: 20110428, end: 20110518
  5. KALETRA [Suspect]
     Indication: ANTIVIRAL TREATMENT
     Dosage: TRANSPLACENTAL
     Route: 064
     Dates: start: 20110421, end: 20110428

REACTIONS (3)
  - PREMATURE BABY [None]
  - MATERNAL DRUGS AFFECTING FOETUS [None]
  - FOETAL GROWTH RESTRICTION [None]
